FAERS Safety Report 4994151-0 (Version None)
Quarter: 2006Q2

REPORT INFORMATION
  Report Type: 
  Country: None (occurrence: None)
  Receive Date: 20060503
  Receipt Date: 20060424
  Transmission Date: 20061013
  Serious: Yes (Death, Life-Threatening, Hospitalization)
  Sender: FDA-Public Use
  Company Number: 2006EU000462

PATIENT
  Age: 60 Year
  Sex: Male

DRUGS (8)
  1. FK506 (TACROLIMUS ) [Suspect]
     Indication: RENAL TRANSPLANT
     Dosage: BID, ORAL
     Route: 048
     Dates: start: 20030324
  2. MYCOPHENOLATE MOFETIL [Suspect]
     Indication: RENAL TRANSPLANT
     Dosage: 1 G, BID, ORAL
     Route: 048
     Dates: start: 20030424
  3. ZENAPAX [Suspect]
     Indication: RENAL TRANSPLANT
     Dosage: 130 MG, UID/QD, IV NOS
     Route: 042
     Dates: start: 20030424, end: 20030618
  4. SOLU-DECORTIN-H      (PREDNISOLONE SODIUM SUCCINATE) [Suspect]
     Indication: RENAL TRANSPLANT
     Dosage: 250 MG, BID
     Dates: start: 20030424, end: 20030424
  5. PREDNISOLONE [Suspect]
     Indication: RENAL TRANSPLANT
     Dosage: 100 MG, D
     Dates: start: 20030424
  6. CALCET       (ERGOCALCIFEROL, CALCIUM GLUCONATE, CALCIUM LACTATE) [Concomitant]
  7. ROCALTROL [Concomitant]
  8. SPASMEX      (TROSPIUM CHLORIDE) [Concomitant]

REACTIONS (10)
  - ADRENAL ADENOMA [None]
  - ASCITES [None]
  - ASPHYXIA [None]
  - GENERAL PHYSICAL HEALTH DETERIORATION [None]
  - HEPATIC NEOPLASM MALIGNANT [None]
  - ILEUS [None]
  - LUNG ADENOCARCINOMA METASTATIC [None]
  - METASTASES TO PERITONEUM [None]
  - PYREXIA [None]
  - SHOCK [None]
